FAERS Safety Report 10410570 (Version 2)
Quarter: 2014Q3

REPORT INFORMATION
  Report Type: Spontaneous
  Country: US (occurrence: US)
  Receive Date: 20140826
  Receipt Date: 20140826
  Transmission Date: 20150326
  Serious: No
  Sender: FDA-Public Use
  Company Number: US-BRISTOL-MYERS SQUIBB COMPANY-20079554

PATIENT
  Age: 31 Year
  Sex: Female
  Weight: 58.05 kg

DRUGS (5)
  1. KENALOG-40 [Suspect]
     Active Substance: TRIAMCINOLONE ACETONIDE
     Indication: UPPER RESPIRATORY TRACT INFECTION
     Dosage: 3 PRIOR INJECTIONS.
     Route: 030
     Dates: start: 20121124
  2. SINGULAIR [Concomitant]
     Active Substance: MONTELUKAST SODIUM
  3. PRAVASTATIN SODIUM. [Concomitant]
     Active Substance: PRAVASTATIN SODIUM
  4. KENALOG-40 [Suspect]
     Active Substance: TRIAMCINOLONE ACETONIDE
     Indication: HYPERSENSITIVITY
     Dosage: 3 PRIOR INJECTIONS.
     Route: 030
     Dates: start: 20121124
  5. ALBUTEROL INHALER [Concomitant]
     Active Substance: ALBUTEROL

REACTIONS (1)
  - Injection site atrophy [Unknown]

NARRATIVE: CASE EVENT DATE: 20121124
